FAERS Safety Report 8247941-5 (Version None)
Quarter: 2012Q1

REPORT INFORMATION
  Report Type: 
  Country: None (occurrence: None)
  Receive Date: 20120330
  Receipt Date: 20120320
  Transmission Date: 20120608
  Serious: Yes (Hospitalization, Other)
  Sender: FDA-Public Use
  Company Number: US-ACTELION-A-NJ2009-26246

PATIENT

DRUGS (3)
  1. ASPIRIN [Concomitant]
  2. TRACLEER [Suspect]
     Indication: PULMONARY ARTERIAL HYPERTENSION
     Dosage: 125 MG, BID
     Route: 048
  3. TRACLEER [Suspect]
     Dosage: 62.5 MG, BID
     Route: 048
     Dates: start: 20090615

REACTIONS (8)
  - ASTHMA [None]
  - DYSPNOEA [None]
  - COUGH [None]
  - DIZZINESS [None]
  - FATIGUE [None]
  - CHILLS [None]
  - PAINFUL RESPIRATION [None]
  - PALPITATIONS [None]
